FAERS Safety Report 5869500-1 (Version None)
Quarter: 2008Q3

REPORT INFORMATION
  Report Type: 
  Country: None (occurrence: None)
  Receive Date: 20080904
  Receipt Date: 20080822
  Transmission Date: 20090109
  Serious: Yes (Other)
  Sender: FDA-Public Use
  Company Number: GB-RANBAXY-2008RR-17593

PATIENT

DRUGS (7)
  1. ACETAMINOPHEN [Suspect]
     Indication: OSTEOARTHRITIS
     Dosage: UNK
     Route: 048
  2. ACETAMINOPHEN [Suspect]
     Indication: PAIN
  3. WARFARIN SODIUM [Suspect]
     Indication: MITRAL VALVE REPLACEMENT
     Route: 065
  4. BURINEX [Concomitant]
     Dosage: UNK
     Route: 065
  5. DIGOXIN [Concomitant]
     Route: 065
  6. SPIRONOLACTONE [Concomitant]
     Route: 065
  7. VERAPAMIL [Concomitant]
     Route: 065

REACTIONS (5)
  - DRUG INTERACTION [None]
  - FEMORAL NERVE PALSY [None]
  - INTERNATIONAL NORMALISED RATIO INCREASED [None]
  - NERVE ROOT COMPRESSION [None]
  - RETROPERITONEAL HAEMATOMA [None]
